FAERS Safety Report 4743799-7 (Version None)
Quarter: 2005Q3

REPORT INFORMATION
  Report Type: 
  Country: None (occurrence: None)
  Receive Date: 20050812
  Receipt Date: 20050801
  Transmission Date: 20060218
  Serious: Yes (Hospitalization)
  Sender: FDA-Public Use
  Company Number: JP-MERCK-0508USA01568

PATIENT
  Age: 16 Year
  Sex: Male

DRUGS (3)
  1. SINGULAIR [Suspect]
     Route: 048
  2. THEO-DUR [Suspect]
     Route: 065
  3. TULOBUTEROL [Concomitant]
     Route: 065

REACTIONS (1)
  - DRUG ERUPTION [None]
